FAERS Safety Report 8203135 (Version 3)
Quarter: 2017Q2

REPORT INFORMATION
  Report Type: Spontaneous
  Country: BR (occurrence: BR)
  Receive Date: 20111027
  Receipt Date: 20170511
  Transmission Date: 20170830
  Serious: Yes (Hospitalization)
  Sender: FDA-Public Use
  Company Number: BR-BIOMARINP-002069

PATIENT
  Age: 4 Year
  Sex: Male
  Weight: 15.2 kg

DRUGS (3)
  1. NAGLAZYME [Suspect]
     Active Substance: GALSULFASE
     Dosage: 20 MG, QW
     Route: 041
  2. NAGLAZYME [Suspect]
     Active Substance: GALSULFASE
     Indication: MUCOPOLYSACCHARIDOSIS VI
     Dosage: 15MG,QW
     Route: 041
     Dates: start: 20100622
  3. POLARAMINE [Concomitant]
     Active Substance: DEXCHLORPHENIRAMINE MALEATE
     Indication: PREMEDICATION
     Dosage: 8GTT,QW
     Route: 048

REACTIONS (4)
  - Fall [Recovered/Resolved with Sequelae]
  - Craniocerebral injury [Recovered/Resolved with Sequelae]
  - Abasia [Recovered/Resolved]
  - Limb deformity [Recovering/Resolving]

NARRATIVE: CASE EVENT DATE: 20111013
